FAERS Safety Report 5262264-4 (Version None)
Quarter: 2007Q1

REPORT INFORMATION
  Report Type: 
  Country: None (occurrence: None)
  Receive Date: 20070312
  Receipt Date: 20070306
  Transmission Date: 20070707
  Serious: Yes (Death, Hospitalization)
  Sender: FDA-Public Use
  Company Number: FR-AVENTIS-200710832FR

PATIENT
  Sex: Female

DRUGS (3)
  1. TAXOTERE [Suspect]
     Indication: GASTRIC CANCER
     Route: 042
     Dates: start: 20060101, end: 20060101
  2. FLUOROURACIL [Suspect]
     Indication: GASTRIC CANCER
     Route: 042
     Dates: start: 20060101, end: 20060101
  3. CYCLOPHOSPHAMIDE [Suspect]
     Indication: GASTRIC CANCER
     Route: 042
     Dates: start: 20060101, end: 20060101

REACTIONS (3)
  - DISSEMINATED INTRAVASCULAR COAGULATION [None]
  - MENINGORRHAGIA [None]
  - TUMOUR LYSIS SYNDROME [None]
